FAERS Safety Report 7395406-5 (Version None)
Quarter: 2011Q1

REPORT INFORMATION
  Report Type: 
  Country: None (occurrence: None)
  Receive Date: 20110331
  Receipt Date: 20110331
  Transmission Date: 20110831
  Serious: Yes (Hospitalization)
  Sender: FDA-Public Use
  Company Number: None

PATIENT
  Age: 63 Year
  Sex: Male
  Weight: 69.2 kg

DRUGS (1)
  1. NAPROXEN [Suspect]
     Indication: PAIN
     Dosage: 375 MG BID PO
     Route: 048
     Dates: start: 20110118, end: 20110131

REACTIONS (5)
  - GASTRIC ULCER [None]
  - GASTRITIS [None]
  - MALLORY-WEISS SYNDROME [None]
  - VOMITING [None]
  - NAUSEA [None]
